FAERS Safety Report 12486101 (Version 1)
Quarter: 2016Q2

REPORT INFORMATION
  Report Type: Spontaneous
  Country: MX (occurrence: MX)
  Receive Date: 20160621
  Receipt Date: 20160621
  Transmission Date: 20160815
  Serious: Yes (Other)
  Sender: FDA-Public Use
  Company Number: MX-BAYER-2016-114575

PATIENT
  Age: 56 Year
  Sex: Female

DRUGS (7)
  1. ACETYLSALICYLIC ACID({=100 MG) [Suspect]
     Active Substance: ASPIRIN
     Indication: ASPIRIN-EXACERBATED RESPIRATORY DISEASE
     Dosage: (CUMULATIVE DOSE OF 483.3 MG) - DAY 1
  2. ACETYLSALICYLIC ACID({=100 MG) [Suspect]
     Active Substance: ASPIRIN
     Indication: ASPIRIN-EXACERBATED RESPIRATORY DISEASE
     Dosage: 300 MG, QD (PER DAY)
  3. NAPROXEN SODIUM ({= 220 MG) [Suspect]
     Active Substance: NAPROXEN SODIUM
  4. ACETYLSALICYLIC ACID({=100 MG) [Suspect]
     Active Substance: ASPIRIN
     Indication: ASPIRIN-EXACERBATED RESPIRATORY DISEASE
     Dosage: 300 MG, QD (PER DAY) - DAY 2
  5. METAMIZOLE [Suspect]
     Active Substance: METAMIZOLE
  6. ACETYLSALICYLIC ACID({=100 MG) [Suspect]
     Active Substance: ASPIRIN
     Indication: ASPIRIN-EXACERBATED RESPIRATORY DISEASE
     Dosage: 150 MG, QD
  7. DICLOFENAC [Suspect]
     Active Substance: DICLOFENAC

REACTIONS (4)
  - Bronchospasm [Recovering/Resolving]
  - Rhinorrhoea [Recovering/Resolving]
  - Nasal obstruction [Recovering/Resolving]
  - Aspirin-exacerbated respiratory disease [Recovering/Resolving]
